FAERS Safety Report 6424585-9 (Version None)
Quarter: 2009Q4

REPORT INFORMATION
  Report Type: 
  Country: None (occurrence: None)
  Receive Date: 20091103
  Receipt Date: 20091020
  Transmission Date: 20100525
  Serious: Yes (Other)
  Sender: FDA-Public Use
  Company Number: PHHY2009CA11189

PATIENT
  Sex: Female

DRUGS (2)
  1. EXJADE [Suspect]
     Indication: IRON OVERLOAD
     Route: 048
  2. EXJADE [Suspect]
     Indication: THALASSAEMIA

REACTIONS (4)
  - DIARRHOEA [None]
  - HAEMOGLOBIN DECREASED [None]
  - PYREXIA [None]
  - YERSINIA INFECTION [None]
